FAERS Safety Report 24322900 (Version 2)
Quarter: 2024Q3

REPORT INFORMATION
  Report Type: Spontaneous
  Country: AU (occurrence: AU)
  Receive Date: 20240916
  Receipt Date: 20240925
  Transmission Date: 20241016
  Serious: Yes (Other)
  Sender: MYLAN
  Company Number: AU-MYLANLABS-2024M1082116

PATIENT
  Age: 66 Year
  Sex: Male

DRUGS (5)
  1. CLOZARIL [Suspect]
     Active Substance: CLOZAPINE
     Indication: Schizophrenia
     Dosage: 300 MILLIGRAM, PM (AT NIGHT)
     Route: 048
     Dates: start: 20220318
  2. VALPROATE SODIUM [Concomitant]
     Active Substance: VALPROATE SODIUM
     Dosage: 500 MILLIGRAM, BID
     Route: 065
  3. PALIPERIDONE [Concomitant]
     Active Substance: PALIPERIDONE
     Dosage: 263 MILLIGRAM, Q3MONTHS (3 MONTHLY)
     Route: 030
  4. Indacaterol maleate and glycopyrronium bromide [Concomitant]
     Dosage: 1 DOSAGE FORM, AM (ONE PUFF EACH MORNING)
     Route: 055
  5. CHOLECALCIFEROL [Concomitant]
     Active Substance: CHOLECALCIFEROL
     Dosage: 25 MICROGRAM, AM (IN MORNING)
     Route: 065

REACTIONS (18)
  - Blood creatine phosphokinase increased [Not Recovered/Not Resolved]
  - Troponin T increased [Not Recovered/Not Resolved]
  - C-reactive protein increased [Not Recovered/Not Resolved]
  - Red blood cell count increased [Unknown]
  - Red cell distribution width increased [Not Recovered/Not Resolved]
  - Glomerular filtration rate decreased [Not Recovered/Not Resolved]
  - Protein total decreased [Recovering/Resolving]
  - Blood albumin decreased [Recovering/Resolving]
  - Globulins increased [Recovering/Resolving]
  - Blood urea increased [Not Recovered/Not Resolved]
  - Aspartate aminotransferase increased [Recovering/Resolving]
  - Basophil count increased [Recovering/Resolving]
  - Mean cell volume decreased [Not Recovered/Not Resolved]
  - Monocytosis [Recovering/Resolving]
  - Lymphocytosis [Not Recovered/Not Resolved]
  - Mean cell haemoglobin decreased [Not Recovered/Not Resolved]
  - Haemoglobin decreased [Recovering/Resolving]
  - White blood cell count increased [Recovering/Resolving]

NARRATIVE: CASE EVENT DATE: 20220418
